FAERS Safety Report 17718517 (Version 2)
Quarter: 2020Q2

REPORT INFORMATION
  Report Type: Report from Study
  Country: CA (occurrence: CA)
  Receive Date: 20200428
  Receipt Date: 20200512
  Transmission Date: 20200714
  Serious: Yes (Death, Hospitalization, Other)
  Sender: FDA-Public Use
  Company Number: CA-JNJFOC-20200429257

PATIENT
  Age: 88 Year
  Sex: Male

DRUGS (1)
  1. APALUTAMIDE [Suspect]
     Active Substance: APALUTAMIDE
     Indication: HORMONE-REFRACTORY PROSTATE CANCER
     Route: 048
     Dates: start: 20191202, end: 20200428

REACTIONS (8)
  - Gallbladder operation [Not Recovered/Not Resolved]
  - Cerebrovascular accident [Fatal]
  - Pulmonary thrombosis [Fatal]
  - Pain [Unknown]
  - Pneumonia [Recovered/Resolved]
  - Thyroid hormones decreased [Not Recovered/Not Resolved]
  - Diarrhoea [Not Recovered/Not Resolved]
  - Influenza [Not Recovered/Not Resolved]

NARRATIVE: CASE EVENT DATE: 202002
